FAERS Safety Report 11984454 (Version 1)
Quarter: 2016Q1

REPORT INFORMATION
  Report Type: Spontaneous
  Country: DE (occurrence: DE)
  Receive Date: 20160201
  Receipt Date: 20160201
  Transmission Date: 20160526
  Serious: Yes (Other)
  Sender: FDA-Public Use
  Company Number: DE-PFIZER INC-2015410479

PATIENT
  Age: 54 Year
  Sex: Male
  Weight: 111 kg

DRUGS (1)
  1. ATORVASTATIN CALCIUM. [Suspect]
     Active Substance: ATORVASTATIN CALCIUM
     Indication: HYPERCHOLESTEROLAEMIA
     Dosage: 40 MG, DAILY
     Route: 048
     Dates: start: 20150908, end: 20150912

REACTIONS (4)
  - Pancreatic enzymes increased [Recovered/Resolved]
  - Abdominal pain upper [Recovering/Resolving]
  - Pancreatitis [Recovered/Resolved]
  - Tumour marker increased [Recovering/Resolving]

NARRATIVE: CASE EVENT DATE: 201509
